FAERS Safety Report 12632782 (Version 2)
Quarter: 2016Q3

REPORT INFORMATION
  Report Type: Spontaneous
  Country: US (occurrence: US)
  Receive Date: 20160808
  Receipt Date: 20160808
  Transmission Date: 20161109
  Serious: No
  Sender: FDA-Public Use
  Company Number: US-BEH-2015056932

PATIENT
  Sex: Male
  Weight: 115 kg

DRUGS (34)
  1. EPI-PEN AUTOINJECTOR [Concomitant]
  2. L-M-X [Concomitant]
  3. BOTOX [Concomitant]
     Active Substance: ONABOTULINUMTOXINA
     Dosage: VIAL
  4. LYRICA [Concomitant]
     Active Substance: PREGABALIN
  5. PULMICORT TURBUHALER [Concomitant]
     Active Substance: BUDESONIDE
     Dosage: 0.25MG/2ML AMPUL-NEB
  6. PROPAFENONE HCL [Concomitant]
     Active Substance: PROPAFENONE HYDROCHLORIDE
  7. CICLOPIROX. [Concomitant]
     Active Substance: CICLOPIROX
     Dosage: CREAM (GM)
  8. NORCO [Concomitant]
     Active Substance: ACETAMINOPHEN\HYDROCODONE BITARTRATE
     Dosage: 7.5-325 MG
  9. CYMBALTA [Concomitant]
     Active Substance: DULOXETINE HYDROCHLORIDE
  10. KETOCONAZOLE. [Concomitant]
     Active Substance: KETOCONAZOLE
     Dosage: CREAM (GM)
  11. FUROSEMIDE. [Concomitant]
     Active Substance: FUROSEMIDE
  12. NEOMYCIN-BACITRACIN-POLYMYXIN [Concomitant]
  13. DIPHENHYDRAMINE. [Concomitant]
     Active Substance: DIPHENHYDRAMINE
  14. FLUDROCORTISONE ACETATE. [Concomitant]
     Active Substance: FLUDROCORTISONE ACETATE
  15. ZOCOR [Concomitant]
     Active Substance: SIMVASTATIN
  16. MIDODRINE HCL [Concomitant]
     Active Substance: MIDODRINE HYDROCHLORIDE
  17. SINEMET 25-100 [Concomitant]
     Dosage: 25MG-100MG
  18. CELEBREX [Concomitant]
     Active Substance: CELECOXIB
  19. LYRICA [Concomitant]
     Active Substance: PREGABALIN
  20. KETAMINE HYDROCHLORIDE. [Concomitant]
     Active Substance: KETAMINE HYDROCHLORIDE
     Dosage: POWDER
  21. HIZENTRA [Suspect]
     Active Substance: HUMAN IMMUNOGLOBULIN G
     Indication: HYPOGAMMAGLOBULINAEMIA
     Route: 058
  22. HIZENTRA [Suspect]
     Active Substance: HUMAN IMMUNOGLOBULIN G
     Route: 058
     Dates: start: 20151202
  23. ACETAMINOPHEN. [Concomitant]
     Active Substance: ACETAMINOPHEN
  24. ERTACZO [Concomitant]
     Active Substance: SERTACONAZOLE NITRATE
     Dosage: CREAM (GM)
  25. LANTUS SOLOSTAR [Concomitant]
     Active Substance: INSULIN GLARGINE
  26. NEXIUM [Concomitant]
     Active Substance: ESOMEPRAZOLE MAGNESIUM
  27. LUNESTA [Concomitant]
     Active Substance: ESZOPICLONE
  28. HIZENTRA [Suspect]
     Active Substance: HUMAN IMMUNOGLOBULIN G
     Indication: SELECTIVE IGG SUBCLASS DEFICIENCY
     Route: 058
  29. CLINDAMYCIN HCL [Concomitant]
     Active Substance: CLINDAMYCIN HYDROCHLORIDE
  30. XALATAN [Concomitant]
     Active Substance: LATANOPROST
     Dosage: DROPS
  31. MESTINON [Concomitant]
     Active Substance: PYRIDOSTIGMINE BROMIDE
  32. LEVAQUIN [Concomitant]
     Active Substance: LEVOFLOXACIN
  33. REGLAN [Concomitant]
     Active Substance: METOCLOPRAMIDE HYDROCHLORIDE
  34. KLOR-CON [Concomitant]
     Active Substance: POTASSIUM CHLORIDE
     Dosage: M20 20 MEQ TAB PRT SR

REACTIONS (2)
  - Sinusitis [Unknown]
  - Secretion discharge [Unknown]
